FAERS Safety Report 6860380-4 (Version None)
Quarter: 2010Q2

REPORT INFORMATION
  Report Type: 
  Country: None (occurrence: None)
  Receive Date: 20100528
  Receipt Date: 20100323
  Transmission Date: 20101027
  Serious: Yes (Hospitalization, Other)
  Sender: FDA-Public Use
  Company Number: CIP09003125

PATIENT
  Age: 63 Year
  Sex: Female
  Weight: 60.3 kg

DRUGS (21)
  1. ACTONEL [Suspect]
     Indication: OSTEOPENIA
     Dosage: 35 MG ONCE A WEEK, ORAL
     Route: 048
     Dates: start: 20030601, end: 20071101
  2. WARFARIN SODIUM [Concomitant]
  3. CARDIZEM CD [Concomitant]
  4. DIGOXIN [Concomitant]
  5. PREVACID [Concomitant]
  6. ALL OTHER THERAPEUTIC PRODUCTS [Concomitant]
  7. COLACE (DOCUSATE SODIUM) [Concomitant]
  8. NASACORT [Concomitant]
  9. COMBIVENT [Concomitant]
  10. OXYBUTYNIN CHLORIDE [Concomitant]
  11. METHOTREXATE [Concomitant]
  12. FOLATE (FOLIC ACID) [Concomitant]
  13. FLEXERIL /00428402/ (CYCLOBENZAPRINE HYDROCHLORIDE) [Concomitant]
  14. TRAMADOL HCL [Concomitant]
  15. EXTRA STRENGTH TYLENOL [Concomitant]
  16. MULTIVITAMIN /01229101/ (VITAMINS NOS) [Concomitant]
  17. POTASSIUM CHLORIDE [Concomitant]
  18. VERAPAMIL [Concomitant]
  19. NORPACE [Concomitant]
  20. DETROL /01350201/ (TOLTERODINE) [Concomitant]
  21. DOXEPIN HCL [Concomitant]

REACTIONS (11)
  - GINGIVAL BLISTER [None]
  - GINGIVAL ULCERATION [None]
  - GINGIVITIS [None]
  - IMPAIRED HEALING [None]
  - JAW DISORDER [None]
  - LOCAL SWELLING [None]
  - OSTEOMYELITIS [None]
  - OSTEONECROSIS [None]
  - PAIN IN JAW [None]
  - PARAESTHESIA ORAL [None]
  - TOOTH INFECTION [None]
